FAERS Safety Report 9307160 (Version 1)
Quarter: 2013Q2

REPORT INFORMATION
  Report Type: Spontaneous
  Country: FR (occurrence: FR)
  Receive Date: 20130524
  Receipt Date: 20130524
  Transmission Date: 20140414
  Serious: Yes (Hospitalization)
  Sender: FDA-Public Use
  Company Number: FR-PFIZER INC-2013158539

PATIENT
  Age: 82 Year
  Sex: Male

DRUGS (11)
  1. CORDARONE [Suspect]
     Indication: ATRIAL FIBRILLATION
     Dosage: 100 MG, DAILY
     Route: 048
  2. PRADAXA [Interacting]
     Indication: THROMBOSIS PROPHYLAXIS
     Dosage: 110 MG, TWICE A DAY
     Route: 048
     Dates: start: 20130207, end: 20130209
  3. AUGMENTIN [Interacting]
     Dosage: 2 DF, TWO TIMES A DAY
     Route: 048
     Dates: start: 20130209, end: 20130214
  4. PREVISCAN [Interacting]
     Indication: THROMBOSIS PROPHYLAXIS
     Dosage: 5 MG, DAILY
     Route: 048
     Dates: end: 20130206
  5. COZAAR [Concomitant]
     Indication: CARDIOMYOPATHY
     Dosage: UNK
  6. CARDENSIEL [Concomitant]
     Indication: CARDIOMYOPATHY
     Dosage: UNK
  7. DIAMICRON [Concomitant]
     Indication: TYPE 2 DIABETES MELLITUS
     Dosage: UNK
  8. LASILIX [Concomitant]
     Dosage: UNK
  9. DIFFU K [Concomitant]
     Dosage: UNK
  10. EUPRESSYL [Concomitant]
     Dosage: UNK
  11. ROVAMYCINE [Concomitant]
     Dosage: UNK
     Dates: start: 20130201, end: 20130205

REACTIONS (3)
  - Drug interaction [Unknown]
  - International normalised ratio increased [Recovered/Resolved]
  - Haemorrhage [Recovered/Resolved]
